FAERS Safety Report 8781939 (Version 2)
Quarter: 2014Q2

REPORT INFORMATION
  Report Type: Spontaneous
  Country: GB (occurrence: GB)
  Receive Date: 20120913
  Receipt Date: 20140409
  Transmission Date: 20141212
  Serious: Yes (Other)
  Sender: FDA-Public Use
  Company Number: GB-MYLANLABS-2012S1018194

PATIENT
  Age: 15 Year
  Sex: Female

DRUGS (4)
  1. CETIRIZINE [Suspect]
     Indication: SEASONAL ALLERGY
     Route: 048
  2. LAMICTAL [Suspect]
     Indication: BIPOLAR DISORDER
     Route: 048
  3. ABILIFY [Suspect]
     Indication: BIPOLAR DISORDER
  4. NEXPLANON [Suspect]
     Indication: CONTRACEPTION
     Route: 059

REACTIONS (5)
  - Abortion spontaneous [Unknown]
  - Exposure during pregnancy [Unknown]
  - Drug interaction [Unknown]
  - Pregnancy with implant contraceptive [Recovered/Resolved]
  - Pregnancy [Recovered/Resolved]
